FAERS Safety Report 5677660-0 (Version None)
Quarter: 2008Q1

REPORT INFORMATION
  Report Type: 
  Country: None (occurrence: None)
  Receive Date: 20080324
  Receipt Date: 20080313
  Transmission Date: 20080703
  Serious: Yes (Other)
  Sender: FDA-Public Use
  Company Number: US-ELI_LILLY_AND_COMPANY-US200803003177

PATIENT
  Sex: Female

DRUGS (9)
  1. CYMBALTA [Suspect]
     Dosage: 30 MG, UNK
     Dates: start: 20080226, end: 20080227
  2. ATENOLOL [Concomitant]
     Indication: HYPERTENSION
  3. HYDROCHLOROTHIAZIDE [Concomitant]
     Indication: HYPERTENSION
  4. NORVASC [Concomitant]
     Indication: HYPERTENSION
  5. OXYCODONE HYDROCHLORIDE W/PARACETAMOL [Concomitant]
  6. HYDROCODONE BITARTRATE [Concomitant]
  7. MORPHINE [Concomitant]
  8. GABAPENTIN [Concomitant]
     Dates: end: 20080310
  9. LYRICA [Concomitant]
     Dates: start: 20080310

REACTIONS (5)
  - ABDOMINAL PAIN UPPER [None]
  - BURNING SENSATION [None]
  - MUCOUS MEMBRANE DISORDER [None]
  - PAIN [None]
  - STEVENS-JOHNSON SYNDROME [None]
